FAERS Safety Report 13264811 (Version 1)
Quarter: 2017Q1

REPORT INFORMATION
  Report Type: Spontaneous
  Country: US (occurrence: US)
  Receive Date: 20170223
  Receipt Date: 20170223
  Transmission Date: 20170428
  Serious: Yes (Hospitalization)
  Sender: FDA-Public Use
  Company Number: US-MYLANLABS-2017M1010091

PATIENT

DRUGS (9)
  1. LITHIUM. [Concomitant]
     Active Substance: LITHIUM
     Dosage: 600MG
     Route: 065
     Dates: start: 20150208
  2. ARIPIPRAZOLE. [Concomitant]
     Active Substance: ARIPIPRAZOLE
     Indication: PRODUCT USED FOR UNKNOWN INDICATION
     Dosage: 10MG
     Route: 065
  3. CLONAZEPAM. [Concomitant]
     Active Substance: CLONAZEPAM
     Indication: PRODUCT USED FOR UNKNOWN INDICATION
     Dosage: AT THE BED TIME
     Route: 065
  4. KETAMINE [Suspect]
     Active Substance: KETAMINE
     Indication: BIPOLAR I DISORDER
     Dosage: 0.5MG/KG INFUSION IN 60ML OF NS, OVER 40 MIN
     Route: 041
     Dates: start: 20150219
  5. SODIUM CHLORIDE. [Concomitant]
     Active Substance: SODIUM CHLORIDE
     Indication: BIPOLAR I DISORDER
     Dosage: 60ML OF NS WITH KETAMINE, TO BE INFUSED OVER 40 MIN
     Route: 041
     Dates: start: 20150219
  6. LORAZEPAM. [Concomitant]
     Active Substance: LORAZEPAM
     Indication: ANXIETY
     Dosage: 0.5MG; AS NEEDED
     Route: 065
  7. LITHIUM. [Concomitant]
     Active Substance: LITHIUM
     Indication: DEPRESSION
     Dosage: 300MG, INCREASED TO 600MG, DUE TO DEPRESSION
     Route: 065
  8. MODAFINIL. [Concomitant]
     Active Substance: MODAFINIL
     Indication: PRODUCT USED FOR UNKNOWN INDICATION
     Dosage: IN THE MORNING
     Route: 065
  9. ZOLPIDEM [Concomitant]
     Active Substance: ZOLPIDEM\ZOLPIDEM TARTRATE
     Indication: PRODUCT USED FOR UNKNOWN INDICATION
     Dosage: 10MG
     Route: 065

REACTIONS (1)
  - Mania [Recovering/Resolving]

NARRATIVE: CASE EVENT DATE: 20150220
